FAERS Safety Report 14794594 (Version 3)
Quarter: 2018Q2

REPORT INFORMATION
  Report Type: Spontaneous
  Country: JP (occurrence: JP)
  Receive Date: 20180423
  Receipt Date: 20180515
  Transmission Date: 20180711
  Serious: Yes (Death, Life-Threatening)
  Sender: FDA-Public Use
  Company Number: JP-ELI_LILLY_AND_COMPANY-JP201804009793

PATIENT
  Age: 79 Year
  Sex: Male
  Weight: 54 kg

DRUGS (2)
  1. PACLITAXEL. [Suspect]
     Active Substance: PACLITAXEL
     Indication: ADENOCARCINOMA GASTRIC
     Dosage: 100 MG, OTHER
     Route: 041
     Dates: start: 20180327, end: 20180403
  2. CYRAMZA [Suspect]
     Active Substance: RAMUCIRUMAB
     Indication: ADENOCARCINOMA GASTRIC
     Dosage: 300 MG, OTHER
     Route: 041
     Dates: start: 20180327, end: 20180327

REACTIONS (5)
  - Interstitial lung disease [Not Recovered/Not Resolved]
  - Circulatory collapse [Fatal]
  - Pyrexia [Not Recovered/Not Resolved]
  - Renal impairment [Fatal]
  - Malignant neoplasm progression [Fatal]

NARRATIVE: CASE EVENT DATE: 20180409
